FAERS Safety Report 4466107-8 (Version None)
Quarter: 2004Q3

REPORT INFORMATION
  Report Type: 
  Country: None (occurrence: None)
  Receive Date: 20040930
  Receipt Date: 20040917
  Transmission Date: 20050211
  Serious: Yes (Other)
  Sender: FDA-Public Use
  Company Number: 2004234460CA

PATIENT

DRUGS (1)
  1. VALDECOXIB [Suspect]
     Dosage: ORAL
     Route: 048

REACTIONS (1)
  - URTICARIA [None]
